FAERS Safety Report 4751487-6 (Version None)
Quarter: 2005Q3

REPORT INFORMATION
  Report Type: 
  Country: None (occurrence: None)
  Receive Date: 20050824
  Receipt Date: 20050324
  Transmission Date: 20060218
  Serious: Yes (Hospitalization, Disabling, Other)
  Sender: FDA-Public Use
  Company Number: US-MERCK-0503USA04551

PATIENT
  Age: 45 Year
  Sex: Male
  Weight: 84 kg

DRUGS (8)
  1. VIOXX [Suspect]
     Indication: OSTEOARTHRITIS
     Route: 048
     Dates: start: 20001001, end: 20011001
  2. PAXIL [Concomitant]
     Indication: DEPRESSION
     Route: 065
     Dates: start: 19900101
  3. PAXIL [Concomitant]
     Indication: PANIC DISORDER
     Route: 065
     Dates: start: 19900101
  4. NICODERM [Concomitant]
     Route: 065
  5. PREVACID [Concomitant]
     Indication: GASTROOESOPHAGEAL REFLUX DISEASE
     Route: 065
     Dates: start: 19990101
  6. ALLEGRA [Concomitant]
     Route: 065
  7. ISOSORBIDE [Concomitant]
     Route: 065
  8. LORAZEPAM [Concomitant]
     Route: 065

REACTIONS (20)
  - ADVERSE EVENT [None]
  - ANGINA PECTORIS [None]
  - ANHEDONIA [None]
  - ARTHRALGIA [None]
  - ATRIAL FIBRILLATION [None]
  - BLOOD CHOLESTEROL INCREASED [None]
  - CHRONIC OBSTRUCTIVE PULMONARY DISEASE [None]
  - CORONARY ARTERY DISEASE [None]
  - DEPRESSION [None]
  - DRUG WITHDRAWAL SYNDROME [None]
  - EMPHYSEMA [None]
  - HYPERTENSION [None]
  - MYOCARDIAL INFARCTION [None]
  - MYOCARDIAL ISCHAEMIA [None]
  - OEDEMA [None]
  - PANIC ATTACK [None]
  - PULMONARY OEDEMA [None]
  - PYREXIA [None]
  - TESTICULAR SWELLING [None]
  - TRACHEOBRONCHITIS [None]
